FAERS Safety Report 12628618 (Version 1)
Quarter: 2016Q3

REPORT INFORMATION
  Report Type: Spontaneous
  Country: US (occurrence: US)
  Receive Date: 20160808
  Receipt Date: 20160808
  Transmission Date: 20161109
  Serious: No
  Sender: FDA-Public Use
  Company Number: US-JAZZ-JPI-P-008426

PATIENT
  Sex: Female

DRUGS (4)
  1. XYREM [Suspect]
     Active Substance: SODIUM OXYBATE
     Dosage: DOSE ADJUSTMENTS
     Route: 048
  2. ETHINYL ESTRADIOL W/NORGESTREL [Concomitant]
     Indication: PRODUCT USED FOR UNKNOWN INDICATION
     Dosage: UNK
  3. XYREM [Suspect]
     Active Substance: SODIUM OXYBATE
     Indication: NARCOLEPSY
     Dosage: 1.5 G, BID
     Route: 048
     Dates: start: 20090309, end: 200907
  4. XYREM [Suspect]
     Active Substance: SODIUM OXYBATE
     Dosage: 4 G, BID
     Route: 048
     Dates: start: 201403

REACTIONS (10)
  - Chest discomfort [Unknown]
  - Stress [Recovering/Resolving]
  - Hyperhidrosis [Unknown]
  - Oedema [Not Recovered/Not Resolved]
  - Panic attack [Recovered/Resolved]
  - Tachycardia [Unknown]
  - Anxiety [Not Recovered/Not Resolved]
  - Paraesthesia [Unknown]
  - Incorrect dose administered [Unknown]
  - Hypertension [Recovered/Resolved]

NARRATIVE: CASE EVENT DATE: 2009
